FAERS Safety Report 13234048 (Version 1)
Quarter: 2017Q1

REPORT INFORMATION
  Report Type: Spontaneous
  Country: US (occurrence: US)
  Receive Date: 20170215
  Receipt Date: 20170215
  Transmission Date: 20170428
  Serious: No
  Sender: FDA-Public Use
  Company Number: US-CIPLA LTD.-2016US20258

PATIENT

DRUGS (5)
  1. GABAPENTIN. [Suspect]
     Active Substance: GABAPENTIN
     Dosage: 600 MG, 2 TABLETS THREE TIMES A DAY
     Route: 048
     Dates: start: 201609, end: 20161013
  2. GABAPENTIN. [Suspect]
     Active Substance: GABAPENTIN
     Indication: MONONEURITIS
     Dosage: UNK, NEURONTIN
     Route: 065
     Dates: start: 20161210
  3. CYMBALTA [Concomitant]
     Active Substance: DULOXETINE HYDROCHLORIDE
     Indication: PAIN
     Dosage: 30 MG, QD
     Dates: start: 2012
  4. GABAPENTIN. [Suspect]
     Active Substance: GABAPENTIN
     Indication: POLYNEUROPATHY
     Dosage: UNK, INVANGEN (CAMBER)
     Route: 065
  5. NUCYNTA [Concomitant]
     Active Substance: TAPENTADOL HYDROCHLORIDE
     Indication: PAIN
     Dosage: 500 MG, TID
     Route: 065
     Dates: start: 2012

REACTIONS (2)
  - Condition aggravated [Unknown]
  - Product substitution issue [Unknown]

NARRATIVE: CASE EVENT DATE: 201609
